FAERS Safety Report 20904358 (Version 1)
Quarter: 2022Q2

REPORT INFORMATION
  Report Type: Report from Study
  Country: IN (occurrence: IN)
  Receive Date: 20220602
  Receipt Date: 20220602
  Transmission Date: 20220721
  Serious: Yes (Other)
  Sender: FDA-Public Use
  Company Number: IN-BRISTOL-MYERS SQUIBB COMPANY-2022-044002

PATIENT
  Age: 54 Year
  Sex: Male
  Weight: 65 kg

DRUGS (2)
  1. NIVOLUMAB [Suspect]
     Active Substance: NIVOLUMAB
     Indication: Metastatic malignant melanoma
     Dosage: 2 WEEKLY
     Route: 042
     Dates: start: 20220214
  2. NIVOLUMAB [Suspect]
     Active Substance: NIVOLUMAB
     Route: 042

REACTIONS (1)
  - Jaundice [Unknown]
